FAERS Safety Report 6245859-0 (Version None)
Quarter: 2009Q2

REPORT INFORMATION
  Report Type: 
  Country: None (occurrence: None)
  Receive Date: 20090626
  Receipt Date: 20090619
  Transmission Date: 20091009
  Serious: Yes (Congenital Anomaly)
  Sender: FDA-Public Use
  Company Number: DE-BRISTOL-MYERS SQUIBB COMPANY-14674337

PATIENT

DRUGS (1)
  1. ARIPIPRAZOLE [Suspect]
     Route: 064

REACTIONS (2)
  - ANAL ATRESIA [None]
  - MATERNAL DRUGS AFFECTING FOETUS [None]
